FAERS Safety Report 5901934-9 (Version None)
Quarter: 2008Q3

REPORT INFORMATION
  Report Type: 
  Country: None (occurrence: None)
  Receive Date: 20080929
  Receipt Date: 20080317
  Transmission Date: 20090109
  Serious: No
  Sender: FDA-Public Use
  Company Number: US-BRISTOL-MYERS SQUIBB COMPANY-14117022

PATIENT
  Sex: Male

DRUGS (2)
  1. BUSPAR [Suspect]
     Dates: start: 20061001
  2. PROVIGIL [Interacting]
     Indication: FATIGUE
     Route: 048

REACTIONS (2)
  - DRUG INEFFECTIVE [None]
  - DRUG INTERACTION [None]
